FAERS Safety Report 25664787 (Version 1)
Quarter: 2025Q3

REPORT INFORMATION
  Report Type: Other
  Country: US (occurrence: US)
  Receive Date: 20250811
  Receipt Date: 20250811
  Transmission Date: 20251020
  Serious: Yes (Hospitalization, Other)
  Sender: OWLPHARMA CONSULTING
  Company Number: US-Owlpharma Consulting, Lda.-2182244

PATIENT
  Age: 72 Year
  Sex: Female

DRUGS (1)
  1. PYRIDOSTIGMINE BROMIDE [Suspect]
     Active Substance: PYRIDOSTIGMINE BROMIDE
     Indication: Myasthenia gravis

REACTIONS (1)
  - Atrioventricular block complete [Recovered/Resolved with Sequelae]
